FAERS Safety Report 5062492-7 (Version None)
Quarter: 2006Q3

REPORT INFORMATION
  Report Type: 
  Country: None (occurrence: None)
  Receive Date: 20060721
  Receipt Date: 20060630
  Transmission Date: 20061208
  Serious: Yes (Hospitalization)
  Sender: FDA-Public Use
  Company Number: 2006RR-02899

PATIENT
  Age: 69 Year
  Sex: Male

DRUGS (3)
  1. SIMVASTATIN [Suspect]
     Indication: HYPERCHOLESTEROLAEMIA
     Dosage: 10 MG, QD,
  2. LISINOPRIL [Concomitant]
  3. ALLOPURINOL [Concomitant]

REACTIONS (12)
  - ASTHENIA [None]
  - BLOOD CREATINE PHOSPHOKINASE INCREASED [None]
  - CORONARY ARTERY DISEASE [None]
  - CORONARY ARTERY STENOSIS [None]
  - DIZZINESS [None]
  - ELECTROCARDIOGRAM ST SEGMENT DEPRESSION [None]
  - EXERCISE ELECTROCARDIOGRAM ABNORMAL [None]
  - FALL [None]
  - GLYCOGEN STORAGE DISEASE TYPE V [None]
  - LOSS OF CONSCIOUSNESS [None]
  - MYOSITIS [None]
  - TROPONIN I INCREASED [None]
